FAERS Safety Report 22013910 (Version 1)
Quarter: 2023Q1

REPORT INFORMATION
  Report Type: Spontaneous
  Country: TR (occurrence: TR)
  Receive Date: 20230221
  Receipt Date: 20230221
  Transmission Date: 20230417
  Serious: Yes (Other)
  Sender: FDA-Public Use
  Company Number: TR-SUN PHARMACEUTICAL INDUSTRIES LTD-2023RR-379020

PATIENT
  Age: 17 Year
  Sex: Female

DRUGS (5)
  1. EPINEPHRINE [Suspect]
     Active Substance: EPINEPHRINE
     Indication: Atrioventricular block complete
     Dosage: INFUSIONS, HIGHEST DOSE
     Route: 065
  2. NOREPINEPHRINE [Suspect]
     Active Substance: NOREPINEPHRINE
     Indication: Atrioventricular block complete
     Dosage: INFUSIONS, HIGHEST DOSE
     Route: 065
  3. VERAPAMIL [Suspect]
     Active Substance: VERAPAMIL HYDROCHLORIDE
     Indication: Product used for unknown indication
     Dosage: 50 DOSAGE FORM (OF 240 MG)
     Route: 048
  4. HYDROCORTISONE [Suspect]
     Active Substance: HYDROCORTISONE
     Indication: Atrioventricular block complete
     Dosage: STRESS DOSE
     Route: 065
  5. TRANDOLAPRIL [Suspect]
     Active Substance: TRANDOLAPRIL
     Indication: Product used for unknown indication
     Dosage: 50 DOSAGE FORM (OF 4 MG)
     Route: 065

REACTIONS (2)
  - Drug ineffective [Unknown]
  - Suicidal ideation [Unknown]
